FAERS Safety Report 20803619 (Version 1)
Quarter: 2022Q2

REPORT INFORMATION
  Report Type: Spontaneous
  Country: RO (occurrence: RO)
  Receive Date: 20220509
  Receipt Date: 20220509
  Transmission Date: 20220721
  Serious: Yes (Hospitalization)
  Sender: FDA-Public Use
  Company Number: RO-ABBVIE-22K-135-4371623-00

PATIENT
  Age: 41 Year
  Sex: Male

DRUGS (1)
  1. ADALIMUMAB [Suspect]
     Active Substance: ADALIMUMAB
     Indication: Product used for unknown indication
     Dosage: 160 MG/80 MG
     Route: 058
     Dates: start: 202103, end: 202103

REACTIONS (11)
  - Colitis ulcerative [Recovered/Resolved]
  - Diarrhoea [Recovering/Resolving]
  - General physical health deterioration [Recovering/Resolving]
  - Colitis ulcerative [Recovering/Resolving]
  - Mucous stools [Not Recovered/Not Resolved]
  - Haematochezia [Not Recovered/Not Resolved]
  - Frequent bowel movements [Recovering/Resolving]
  - Frequent bowel movements [Not Recovered/Not Resolved]
  - Drug ineffective [Not Recovered/Not Resolved]
  - Inflammation [Recovered/Resolved]
  - Dehydration [Recovering/Resolving]

NARRATIVE: CASE EVENT DATE: 20210301
